FAERS Safety Report 16314477 (Version 2)
Quarter: 2019Q3

REPORT INFORMATION
  Report Type: Report from Study
  Country: US (occurrence: US)
  Receive Date: 20190515
  Receipt Date: 20190826
  Transmission Date: 20191004
  Serious: Yes (Hospitalization)
  Sender: FDA-Public Use
  Company Number: US-ACTELION-A-US2019-190479

PATIENT
  Sex: Female
  Weight: 60.32 kg

DRUGS (9)
  1. PLAQUENIL [Concomitant]
     Active Substance: HYDROXYCHLOROQUINE SULFATE
     Dosage: 400 MG, QD
  2. PREDNISONE. [Concomitant]
     Active Substance: PREDNISONE
     Dosage: 5 MG, QD
  3. TRACLEER [Suspect]
     Active Substance: BOSENTAN
     Dosage: 62.5 UNK
     Route: 048
  4. TRACLEER [Suspect]
     Active Substance: BOSENTAN
     Indication: PULMONARY ARTERIAL HYPERTENSION
     Dosage: 125 MG, BID
     Route: 048
  5. CARVEDILOL. [Concomitant]
     Active Substance: CARVEDILOL
     Dosage: 12.5 MG
     Dates: start: 20160523
  6. LISINOPRIL. [Concomitant]
     Active Substance: LISINOPRIL
     Dosage: 20 MG
     Dates: start: 20160616
  7. CARVEDILOL. [Concomitant]
     Active Substance: CARVEDILOL
     Dosage: 6.25 MG
     Dates: start: 20160126
  8. NIFEDIPINE. [Concomitant]
     Active Substance: NIFEDIPINE
     Dosage: 90 MG, QD
  9. HYDROXYCHLOROQUINE [Concomitant]
     Active Substance: HYDROXYCHLOROQUINE
     Dosage: 200 MG, QD
     Route: 048

REACTIONS (9)
  - Skin abrasion [Unknown]
  - Pruritus [Unknown]
  - Arthralgia [Unknown]
  - Rash [Unknown]
  - Oedema peripheral [Unknown]
  - Cerebrovascular accident [Unknown]
  - Dermatitis [Unknown]
  - Hemianaesthesia [Unknown]
  - Dyspnoea [Unknown]
